FAERS Safety Report 12868895 (Version 2)
Quarter: 2016Q4

REPORT INFORMATION
  Report Type: Spontaneous
  Country: JP (occurrence: JP)
  Receive Date: 20161021
  Receipt Date: 20161104
  Transmission Date: 20170207
  Serious: No
  Sender: FDA-Public Use
  Company Number: JP-ROCHE-1844985

PATIENT
  Age: 72 Year
  Sex: Female
  Weight: 60 kg

DRUGS (3)
  1. ACTEMRA [Suspect]
     Active Substance: TOCILIZUMAB
     Dosage: DOSAGE IS UNCERTAIN.
     Route: 058
     Dates: start: 20160909, end: 20161007
  2. ACTEMRA [Suspect]
     Active Substance: TOCILIZUMAB
     Indication: RHEUMATOID ARTHRITIS
     Dosage: DOSAGE IS UNCERTAIN.
     Route: 058
     Dates: start: 20160212
  3. CELECOX [Concomitant]
     Active Substance: CELECOXIB
     Indication: PAIN
     Dosage: THE FRACTIONATION DOSE FREQUENCY IS UNCERTAIN. ?DOSE INTERVAL UNCERTAINTY
     Route: 065
     Dates: start: 20160205, end: 20160617

REACTIONS (1)
  - Drug eruption [Recovered/Resolved]

NARRATIVE: CASE EVENT DATE: 20160909
